FAERS Safety Report 6266894-2 (Version None)
Quarter: 2009Q3

REPORT INFORMATION
  Report Type: 
  Country: None (occurrence: None)
  Receive Date: 20090714
  Receipt Date: 20090707
  Transmission Date: 20100115
  Serious: Yes (Life-Threatening, Other)
  Sender: FDA-Public Use
  Company Number: PHHY2009BR27799

PATIENT
  Sex: Female
  Weight: 77 kg

DRUGS (2)
  1. FLOTAC [Suspect]
     Indication: ARTHRALGIA
     Dosage: 1 DF, BID
     Route: 048
  2. FLOTAC [Suspect]
     Dosage: 1 TAB/DAY

REACTIONS (4)
  - FEELING ABNORMAL [None]
  - HEART RATE INCREASED [None]
  - HYPERTENSION [None]
  - RESPIRATORY ARREST [None]
